FAERS Safety Report 16227938 (Version 4)
Quarter: 2020Q4

REPORT INFORMATION
  Report Type: Spontaneous
  Country: JP (occurrence: JP)
  Receive Date: 20190423
  Receipt Date: 20201221
  Transmission Date: 20210113
  Serious: Yes (Other)
  Sender: FDA-Public Use
  Company Number: PHJP2019JP004634

PATIENT
  Age: 14 Year
  Sex: Male

DRUGS (2)
  1. ARRANON [Suspect]
     Active Substance: NELARABINE
     Indication: ACUTE LYMPHOCYTIC LEUKAEMIA RECURRENT
     Dosage: 650 MG
     Route: 042
     Dates: start: 201811
  2. ARRANON [Suspect]
     Active Substance: NELARABINE
     Dosage: 650 MG, QD
     Route: 042
     Dates: start: 20190124

REACTIONS (19)
  - Muscle atrophy [Unknown]
  - Paralysis [Unknown]
  - Dysaesthesia [Unknown]
  - Bladder disorder [Unknown]
  - Behaviour disorder [Unknown]
  - Sensory disturbance [Unknown]
  - Polyneuropathy [Not Recovered/Not Resolved]
  - Gait disturbance [Unknown]
  - Hyporeflexia [Unknown]
  - Myelopathy [Not Recovered/Not Resolved]
  - Paraesthesia [Unknown]
  - Pain [Unknown]
  - Fine motor skill dysfunction [Unknown]
  - Deafness [Not Recovered/Not Resolved]
  - Anaesthesia [Unknown]
  - Hypoaesthesia [Unknown]
  - Muscular weakness [Unknown]
  - Anorectal disorder [Unknown]
  - Areflexia [Unknown]

NARRATIVE: CASE EVENT DATE: 20190222
